FAERS Safety Report 4327614-1 (Version None)
Quarter: 2004Q1

REPORT INFORMATION
  Report Type: 
  Country: None (occurrence: None)
  Receive Date: 20040325
  Receipt Date: 20040316
  Transmission Date: 20041129
  Serious: Yes (Hospitalization, Other)
  Sender: FDA-Public Use
  Company Number: B0325914A

PATIENT

DRUGS (2)
  1. ZIDOVUDINE [Suspect]
     Indication: HIV INFECTION
  2. ANTIRETROVIRAL MEDICATION (FORMULATION UNKNOWN) (ANTIRETROVIRAL MEDICA [Suspect]
     Indication: HIV INFECTION
     Dosage: TRANSPLACENTARY
     Route: 064

REACTIONS (5)
  - ANAEMIA NEONATAL [None]
  - CAESAREAN SECTION [None]
  - DRUG EXPOSURE DURING PREGNANCY [None]
  - POLYHYDRAMNIOS [None]
  - PREMATURE BABY [None]
